FAERS Safety Report 7677070-0 (Version None)
Quarter: 2011Q3

REPORT INFORMATION
  Report Type: 
  Country: None (occurrence: None)
  Receive Date: 20110811
  Receipt Date: 20110727
  Transmission Date: 20111222
  Serious: Yes (Death)
  Sender: FDA-Public Use
  Company Number: US-ELI_LILLY_AND_COMPANY-US201106007037

PATIENT
  Sex: Female

DRUGS (3)
  1. DULOXETINE HYDROCHLORIDE [Suspect]
     Dosage: UNK UNK, UNKNOWN
  2. ANTIDEPRESSANTS [Concomitant]
  3. LIPITOR [Concomitant]

REACTIONS (1)
  - PANCREATITIS [None]
